FAERS Safety Report 4896699-6 (Version None)
Quarter: 2006Q1

REPORT INFORMATION
  Report Type: 
  Country: None (occurrence: None)
  Receive Date: 20060131
  Receipt Date: 20060120
  Transmission Date: 20060701
  Serious: Yes (Life-Threatening, Other)
  Sender: FDA-Public Use
  Company Number: JP-MERCK-0601USA02941

PATIENT
  Age: 69 Year
  Sex: Female
  Weight: 48 kg

DRUGS (2)
  1. FARESTON [Suspect]
     Indication: PROPHYLAXIS
     Route: 048
     Dates: start: 20040901, end: 20051201
  2. PRIMAXIN [Suspect]
     Indication: PYREXIA
     Route: 041
     Dates: start: 20051215, end: 20051216

REACTIONS (2)
  - DISSEMINATED INTRAVASCULAR COAGULATION [None]
  - PANCYTOPENIA [None]
